FAERS Safety Report 6458718-5 (Version None)
Quarter: 2009Q4

REPORT INFORMATION
  Report Type: 
  Country: None (occurrence: None)
  Receive Date: 20091127
  Receipt Date: 20091117
  Transmission Date: 20100525
  Serious: Yes (Death)
  Sender: FDA-Public Use
  Company Number: JP-ROCHE-668670

PATIENT
  Sex: Female
  Weight: 82 kg

DRUGS (7)
  1. XELODA [Suspect]
     Indication: COLON CANCER METASTATIC
     Dosage: DRUG NAME REPORTED AS: XELODA 300(CAPECITABINE)
     Route: 048
     Dates: start: 20091021, end: 20091023
  2. AVASTIN [Suspect]
     Indication: COLON CANCER METASTATIC
     Route: 041
     Dates: start: 20091021, end: 20091021
  3. ELPLAT [Suspect]
     Indication: COLON CANCER METASTATIC
     Route: 041
     Dates: start: 20091021, end: 20091021
  4. AMARYL [Concomitant]
     Route: 048
  5. ACTOS [Concomitant]
     Route: 048
  6. BASEN [Concomitant]
     Route: 048
  7. MEVALOTIN [Concomitant]
     Route: 048

REACTIONS (3)
  - BONE MARROW FAILURE [None]
  - SEPSIS [None]
  - STOMATITIS [None]
